FAERS Safety Report 25100828 (Version 1)
Quarter: 2025Q1

REPORT INFORMATION
  Report Type: Report from Study
  Country: CA (occurrence: CA)
  Receive Date: 20250320
  Receipt Date: 20250320
  Transmission Date: 20250409
  Serious: Yes (Other)
  Sender: ABBVIE
  Company Number: CA-ABBVIE-6179686

PATIENT
  Age: 36 Year
  Sex: Female

DRUGS (3)
  1. SKYRIZI [Suspect]
     Active Substance: RISANKIZUMAB-RZAA
     Indication: Crohn^s disease
     Dosage: WEEK 8
     Route: 042
     Dates: start: 202502
  2. SKYRIZI [Suspect]
     Active Substance: RISANKIZUMAB-RZAA
     Indication: Crohn^s disease
     Route: 042
     Dates: start: 20241211, end: 20241211
  3. SKYRIZI [Suspect]
     Active Substance: RISANKIZUMAB-RZAA
     Indication: Crohn^s disease
     Dosage: WEEK 4
     Route: 042
     Dates: start: 202501, end: 202501

REACTIONS (11)
  - Obstruction [Unknown]
  - Hypoaesthesia [Unknown]
  - Crohn^s disease [Unknown]
  - Pelvic pain [Unknown]
  - Back pain [Unknown]
  - Dysphagia [Unknown]
  - Lymphadenopathy [Unknown]
  - Abdominal distension [Unknown]
  - Haematochezia [Recovering/Resolving]
  - Constipation [Unknown]
  - Nausea [Unknown]

NARRATIVE: CASE EVENT DATE: 20250220
